FAERS Safety Report 9514375 (Version 5)
Quarter: 2014Q2

REPORT INFORMATION
  Report Type: Spontaneous
  Country: AR (occurrence: AR)
  Receive Date: 20130911
  Receipt Date: 20140604
  Transmission Date: 20141212
  Serious: Yes (Other)
  Sender: FDA-Public Use
  Company Number: AR-AMGEN-ARGSP2013063288

PATIENT
  Age: 35 Year
  Sex: Female

DRUGS (4)
  1. ENBREL [Suspect]
     Indication: RHEUMATOID ARTHRITIS
     Dosage: 50 MG, WEEKLY
     Route: 065
     Dates: start: 20120801
  2. PREDNISONE [Concomitant]
     Dosage: UNK
  3. ARCOXIA [Concomitant]
     Dosage: UNK
  4. ARTRAIT                            /00113801/ [Concomitant]
     Dosage: UNK

REACTIONS (3)
  - Skin papilloma [Recovered/Resolved]
  - Vulvovaginal human papilloma virus infection [Recovered/Resolved]
  - Localised infection [Not Recovered/Not Resolved]
